FAERS Safety Report 6160550-7 (Version None)
Quarter: 2009Q2

REPORT INFORMATION
  Report Type: 
  Country: None (occurrence: None)
  Receive Date: 20090420
  Receipt Date: 20090408
  Transmission Date: 20091009
  Serious: Yes (Hospitalization, Other)
  Sender: FDA-Public Use
  Company Number: US-PFIZER INC-2005139114

PATIENT
  Sex: Female

DRUGS (6)
  1. PROVERA [Suspect]
     Indication: HORMONE REPLACEMENT THERAPY
     Dosage: UNK
     Route: 065
     Dates: start: 19910101, end: 20020601
  2. MEDROXYPROGESTERONE [Suspect]
     Indication: HORMONE REPLACEMENT THERAPY
     Route: 065
     Dates: start: 19980101, end: 20020601
  3. PREMARIN [Suspect]
     Indication: HORMONE REPLACEMENT THERAPY
     Dosage: UNK
     Route: 065
     Dates: start: 19980101, end: 20020601
  4. CELEBREX [Concomitant]
     Indication: ARTHRITIS
     Dosage: 200 MG, UNK
     Dates: start: 20010101
  5. PAXIL [Concomitant]
     Indication: ANXIETY
     Dosage: UNK
     Dates: start: 19980101
  6. SYNTHROID [Concomitant]
     Indication: HYPOTHYROIDISM
     Dosage: 50 UNK, UNK
     Dates: start: 20071101

REACTIONS (4)
  - ANXIETY [None]
  - ARTHRITIS [None]
  - BREAST CANCER FEMALE [None]
  - THYROID DISORDER [None]
